FAERS Safety Report 21022688 (Version 1)
Quarter: 2022Q2

REPORT INFORMATION
  Report Type: Spontaneous
  Country: US (occurrence: US)
  Receive Date: 20220629
  Receipt Date: 20220629
  Transmission Date: 20220721
  Serious: Yes (Hospitalization, Other)
  Sender: FDA-Public Use
  Company Number: US-PFIZER INC-PV202200006203

PATIENT
  Age: 45 Year
  Sex: Male

DRUGS (22)
  1. LORAZEPAM [Suspect]
     Active Substance: LORAZEPAM
     Indication: Catatonia
     Dosage: 2 MG, AS NEEDED
     Route: 048
  2. LORAZEPAM [Suspect]
     Active Substance: LORAZEPAM
     Indication: Agitation
     Dosage: 1-2 MG
     Route: 048
  3. LORAZEPAM [Suspect]
     Active Substance: LORAZEPAM
     Dosage: 2 MG, 3X/DAY
     Route: 048
  4. LORAZEPAM [Suspect]
     Active Substance: LORAZEPAM
     Dosage: 1-2 MG
     Route: 030
  5. CLOZAPINE [Suspect]
     Active Substance: CLOZAPINE
     Indication: Hallucination
     Dosage: UNK, DAILY
  6. CLOZAPINE [Suspect]
     Active Substance: CLOZAPINE
     Indication: Thinking abnormal
  7. CLOZAPINE [Suspect]
     Active Substance: CLOZAPINE
     Indication: Echolalia
  8. CLOZAPINE [Suspect]
     Active Substance: CLOZAPINE
     Indication: Agitation
  9. HYDROXYZINE [Concomitant]
     Active Substance: HYDROXYZINE HYDROCHLORIDE
     Indication: Agitation
     Dosage: UNK UNK, AS NEEDED
  10. HYDROXYZINE [Concomitant]
     Active Substance: HYDROXYZINE HYDROCHLORIDE
     Indication: Anxiety
  11. BENADRYL [Concomitant]
     Active Substance: DIPHENHYDRAMINE HYDROCHLORIDE
     Indication: Agitation
     Dosage: 50 MG, AS NEEDED
     Route: 048
  12. CARBAMAZEPINE [Concomitant]
     Active Substance: CARBAMAZEPINE
     Indication: Psychotherapy
     Dosage: 200 MG, 2X/DAY
  13. CARBAMAZEPINE [Concomitant]
     Active Substance: CARBAMAZEPINE
     Dosage: 200 MG, 3X/DAY
  14. OLANZAPINE [Concomitant]
     Active Substance: OLANZAPINE
     Indication: Psychotherapy
     Dosage: 20 MG, AT BEDTIME
  15. OLANZAPINE [Concomitant]
     Active Substance: OLANZAPINE
     Dosage: 10 MG, AS NEEDED
     Route: 030
  16. CLONAZEPAM [Concomitant]
     Active Substance: CLONAZEPAM
     Indication: Psychotherapy
     Dosage: 1 MG, 2X/DAY, IN THE FIRST NINETEEN DAYS
  17. CLONAZEPAM [Concomitant]
     Active Substance: CLONAZEPAM
     Dosage: 1 MG, PER OS
     Route: 048
  18. THIAMINE [Concomitant]
     Active Substance: THIAMINE
     Indication: Wernicke-Korsakoff syndrome
     Dosage: UNK
     Route: 042
  19. THIAMINE [Concomitant]
     Active Substance: THIAMINE
     Dosage: UNK
     Route: 048
  20. GALANTAMINE [Concomitant]
     Active Substance: GALANTAMINE
     Dosage: UNK
  21. ESCITALOPRAM [Concomitant]
     Active Substance: ESCITALOPRAM OXALATE
     Indication: Psychotherapy
     Dosage: 20 MG, DAILY
  22. VALPROIC ACID [Concomitant]
     Active Substance: VALPROIC ACID
     Indication: Catatonia
     Dosage: UNK

REACTIONS (2)
  - Withdrawal catatonia [Unknown]
  - Off label use [Unknown]
